FAERS Safety Report 10375929 (Version 1)
Quarter: 2014Q3

REPORT INFORMATION
  Report Type: Spontaneous
  Country: US (occurrence: US)
  Receive Date: 20140811
  Receipt Date: 20140811
  Transmission Date: 20150326
  Serious: No
  Sender: FDA-Public Use
  Company Number: US-BAXTER-2014BAX041898

PATIENT
  Age: 30 Year
  Sex: Male
  Weight: 74.46 kg

DRUGS (1)
  1. RIXUBIS [Suspect]
     Active Substance: COAGULATION FACTOR IX RECOMBINANT HUMAN
     Indication: FACTOR IX DEFICIENCY
     Dosage: 300 UNITS
     Route: 042
     Dates: start: 20140701

REACTIONS (2)
  - Drug effect delayed [Unknown]
  - Asthenia [Unknown]

NARRATIVE: CASE EVENT DATE: 20140701
